FAERS Safety Report 20941417 (Version 8)
Quarter: 2023Q1

REPORT INFORMATION
  Report Type: Report from Study
  Country: GB (occurrence: GB)
  Receive Date: 20220610
  Receipt Date: 20230216
  Transmission Date: 20230417
  Serious: Yes (Hospitalization)
  Sender: FDA-Public Use
  Company Number: GB-JNJFOC-20220505257

PATIENT
  Age: 52 Year
  Sex: Female
  Weight: 66.2 kg

DRUGS (22)
  1. AMIVANTAMAB [Suspect]
     Active Substance: AMIVANTAMAB
     Indication: Non-small cell lung cancer metastatic
     Route: 042
     Dates: start: 20220427, end: 20220525
  2. CARBOPLATIN [Suspect]
     Active Substance: CARBOPLATIN
     Indication: Non-small cell lung cancer metastatic
     Route: 042
     Dates: start: 20220427, end: 20220525
  3. PEMETREXED [Suspect]
     Active Substance: PEMETREXED
     Indication: Non-small cell lung cancer metastatic
     Route: 042
     Dates: start: 20220427, end: 20220525
  4. BECLOMETHASONE DIPROPIONATE [Concomitant]
     Active Substance: BECLOMETHASONE DIPROPIONATE
     Indication: Dyspnoea
     Route: 045
     Dates: start: 20120101
  5. FESOTERODINE [Concomitant]
     Active Substance: FESOTERODINE
     Indication: Pruritus
     Route: 048
     Dates: start: 20160101
  6. OXYCODONE [Concomitant]
     Active Substance: OXYCODONE
     Indication: Back pain
     Route: 048
     Dates: start: 20161001
  7. OXYCODONE [Concomitant]
     Active Substance: OXYCODONE
     Indication: Fibromyalgia
  8. DERMOL [BENZALKONIUM CHLORIDE;CHLORHEXIDINE HYDROCHLORIDE;ISOPROPYL MY [Concomitant]
     Indication: Pruritus
     Dosage: DOSE: UNKNOWN
     Route: 061
     Dates: start: 20190101
  9. ALBUTEROL [Concomitant]
     Active Substance: ALBUTEROL
     Indication: Dyspnoea
     Route: 055
     Dates: start: 20200701
  10. BECLOMETHASONE\FORMOTEROL [Concomitant]
     Active Substance: BECLOMETHASONE\FORMOTEROL
     Indication: Dyspnoea
     Route: 055
     Dates: start: 20200701, end: 20220621
  11. URSODIOL [Concomitant]
     Active Substance: URSODIOL
     Indication: Primary biliary cholangitis
     Route: 048
     Dates: start: 20210101
  12. OMEPRAZOLE [Concomitant]
     Active Substance: OMEPRAZOLE
     Indication: Dyspepsia
     Route: 048
     Dates: start: 20211101
  13. FEXOFENADINE [Concomitant]
     Active Substance: FEXOFENADINE HYDROCHLORIDE
     Indication: Primary biliary cholangitis
     Route: 048
     Dates: start: 20211101
  14. FOLIC ACID [Concomitant]
     Active Substance: FOLIC ACID
     Indication: Non-small cell lung cancer
     Route: 048
     Dates: start: 20220328
  15. VITAMIN B12 [Concomitant]
     Active Substance: CYANOCOBALAMIN
     Indication: Non-small cell lung cancer
     Route: 030
     Dates: start: 20220328
  16. BETAMETHASONE [Concomitant]
     Active Substance: BETAMETHASONE
     Indication: Infusion related reaction
     Route: 061
     Dates: start: 20220428
  17. ZEROBASE [PARAFFIN, LIQUID] [Concomitant]
     Indication: Non-small cell lung cancer
     Dosage: DOSE: UNKOWN
     Route: 061
     Dates: start: 20220428
  18. GRANISETRON [Concomitant]
     Active Substance: GRANISETRON
     Indication: Non-small cell lung cancer
     Route: 048
     Dates: start: 20220428
  19. METOCLOPRAMIDE [Concomitant]
     Active Substance: METOCLOPRAMIDE
     Indication: Non-small cell lung cancer
     Route: 048
     Dates: start: 20220428
  20. DOXYCYCLINE [Concomitant]
     Active Substance: DOXYCYCLINE
     Indication: Antibiotic prophylaxis
     Route: 048
     Dates: start: 20220428, end: 20220530
  21. CHLORPHENIRAMINE MALEATE [Concomitant]
     Active Substance: CHLORPHENIRAMINE MALEATE
     Indication: Infusion related reaction
     Route: 042
     Dates: start: 20220427, end: 20220427
  22. CYCLIZINE [Concomitant]
     Active Substance: CYCLIZINE
     Indication: Infusion related reaction
     Route: 058
     Dates: start: 20220427, end: 20220427

REACTIONS (4)
  - Nausea [Recovered/Resolved]
  - Vomiting [Recovered/Resolved]
  - Febrile neutropenia [Recovered/Resolved]
  - Constipation [Not Recovered/Not Resolved]

NARRATIVE: CASE EVENT DATE: 20220502
